FAERS Safety Report 25235014 (Version 2)
Quarter: 2025Q2

REPORT INFORMATION
  Report Type: Spontaneous
  Country: AU (occurrence: AU)
  Receive Date: 20250424
  Receipt Date: 20250428
  Transmission Date: 20250716
  Serious: Yes (Hospitalization)
  Sender: PFIZER
  Company Number: None

PATIENT
  Sex: Male

DRUGS (3)
  1. FLUCONAZOLE [Suspect]
     Active Substance: FLUCONAZOLE
  2. METRONIDAZOLE [Suspect]
     Active Substance: METRONIDAZOLE
  3. CEFAZOLIN SODIUM [Suspect]
     Active Substance: CEFAZOLIN SODIUM

REACTIONS (5)
  - Liver function test abnormal [Recovering/Resolving]
  - Gallbladder disorder [Unknown]
  - Hepatic steatosis [Unknown]
  - Treatment failure [Unknown]
  - Sepsis [Unknown]
